FAERS Safety Report 6220118-0 (Version None)
Quarter: 2009Q2

REPORT INFORMATION
  Report Type: 
  Country: None (occurrence: None)
  Receive Date: 20090609
  Receipt Date: 20090602
  Transmission Date: 20091009
  Serious: Yes (Death, Hospitalization)
  Sender: FDA-Public Use
  Company Number: PT-ABBOTT-09P-130-0575525-00

PATIENT
  Sex: Female

DRUGS (3)
  1. HUMIRA [Suspect]
     Indication: PYODERMA GANGRENOSUM
     Route: 058
     Dates: start: 20081201
  2. HUMIRA [Suspect]
     Route: 058
     Dates: end: 20090318
  3. PREDNISOLONE [Concomitant]
     Indication: PYODERMA GANGRENOSUM

REACTIONS (5)
  - CARDIOGENIC SHOCK [None]
  - DISORIENTATION [None]
  - FATIGUE [None]
  - PYREXIA [None]
  - TUBERCULOSIS [None]
